FAERS Safety Report 22147931 (Version 1)
Quarter: 2023Q1

REPORT INFORMATION
  Report Type: Spontaneous
  Country: US (occurrence: None)
  Receive Date: 20230328
  Receipt Date: 20230328
  Transmission Date: 20230418
  Serious: Yes (Hospitalization)
  Sender: FDA-Public Use
  Company Number: None

PATIENT
  Sex: Female

DRUGS (2)
  1. DEFERASIROX [Suspect]
     Active Substance: DEFERASIROX
     Indication: Sickle cell disease
     Dosage: 1080MG ONCE DAILY ORAL
     Route: 048
     Dates: start: 202301
  2. OXBRYTA [Suspect]
     Active Substance: VOXELOTOR

REACTIONS (1)
  - Sickle cell anaemia with crisis [None]

NARRATIVE: CASE EVENT DATE: 20230101
